FAERS Safety Report 23637653 (Version 3)
Quarter: 2024Q3

REPORT INFORMATION
  Report Type: Spontaneous
  Country: US (occurrence: US)
  Receive Date: 20240315
  Receipt Date: 20240718
  Transmission Date: 20241017
  Serious: No
  Sender: SANOFI AVENTIS
  Company Number: US-SA-SAC20240312000870

PATIENT
  Age: 79 Year
  Sex: Female

DRUGS (2)
  1. KEVZARA [Suspect]
     Active Substance: SARILUMAB
     Indication: Polymyalgia rheumatica
     Dosage: 200 MG, QOW
     Route: 058
     Dates: start: 202308
  2. PROLIA [Suspect]
     Active Substance: DENOSUMAB
     Dosage: UNK
     Dates: start: 202311

REACTIONS (4)
  - Bone pain [Unknown]
  - Pain in extremity [Unknown]
  - Sciatica [Unknown]
  - Myalgia [Unknown]

NARRATIVE: CASE EVENT DATE: 20240101
